FAERS Safety Report 10429451 (Version 1)
Quarter: 2014Q3

REPORT INFORMATION
  Report Type: Spontaneous
  Country: US (occurrence: None)
  Receive Date: 20140725
  Receipt Date: 20140725
  Transmission Date: 20150326
  Serious: Yes (Hospitalization, Other)
  Sender: FDA-Public Use
  Company Number: 163-50794-13043419

PATIENT
  Age: 65 Year
  Sex: Male
  Weight: 62.14 kg

DRUGS (1)
  1. VIDAZA [Suspect]
     Active Substance: AZACITIDINE
     Indication: MYELODYSPLASTIC SYNDROME
     Dosage: 7 IN 7 D
     Dates: start: 201211, end: 201304

REACTIONS (10)
  - Pneumonia [None]
  - Pyrexia [None]
  - Decreased appetite [None]
  - Weight decreased [None]
  - Fatigue [None]
  - Dysgeusia [None]
  - Haemoglobin abnormal [None]
  - Platelet count decreased [None]
  - Dehydration [None]
  - Constipation [None]

NARRATIVE: CASE EVENT DATE: 201201
